FAERS Safety Report 6010168-1 (Version None)
Quarter: 2008Q4

REPORT INFORMATION
  Report Type: 
  Country: None (occurrence: None)
  Receive Date: 20081217
  Receipt Date: 20081217
  Transmission Date: 20090506
  Serious: Yes (Disabling)
  Sender: FDA-Public Use
  Company Number: None

PATIENT
  Age: 64 Year
  Sex: Female
  Weight: 58.0604 kg

DRUGS (1)
  1. FEMARA [Suspect]
     Indication: URINARY INCONTINENCE
     Dosage: 2.5 MG 1@DAILY MOUTH
     Route: 048
     Dates: start: 20080401

REACTIONS (2)
  - HYPOTHYROIDISM [None]
  - MALAISE [None]
